FAERS Safety Report 9622594 (Version 1)
Quarter: 2013Q4

REPORT INFORMATION
  Report Type: Spontaneous
  Country: FR (occurrence: FR)
  Receive Date: 20131015
  Receipt Date: 20131015
  Transmission Date: 20140711
  Serious: Yes (Hospitalization)
  Sender: FDA-Public Use
  Company Number: FR-ROCHE-1288226

PATIENT
  Age: 55 Year
  Sex: Male

DRUGS (10)
  1. ROVALCYTE [Suspect]
     Indication: PRODUCT USED FOR UNKNOWN INDICATION
     Route: 048
     Dates: start: 201301, end: 20130711
  2. TERBINAFINE [Suspect]
     Indication: ONYCHOMYCOSIS
     Route: 048
     Dates: start: 20130606, end: 20130620
  3. ATENOLOL [Suspect]
     Indication: PRODUCT USED FOR UNKNOWN INDICATION
     Route: 048
     Dates: start: 201211, end: 201306
  4. LOXEN [Concomitant]
     Route: 048
  5. ATHYMIL [Concomitant]
     Route: 048
  6. ADVAGRAF [Concomitant]
     Route: 048
     Dates: start: 201305
  7. CELLCEPT [Concomitant]
     Route: 048
     Dates: start: 201305
  8. KARDEGIC [Concomitant]
     Route: 048
     Dates: start: 201305
  9. DAFALGAN [Concomitant]
     Route: 048
     Dates: start: 201301
  10. SERETIDE [Concomitant]
     Route: 055
     Dates: start: 201212

REACTIONS (1)
  - Cholestasis [Recovering/Resolving]
